FAERS Safety Report 25432865 (Version 3)
Quarter: 2025Q4

REPORT INFORMATION
  Report Type: Spontaneous
  Country: SD (occurrence: SD)
  Receive Date: 20250613
  Receipt Date: 20251026
  Transmission Date: 20260117
  Serious: Yes (Death, Hospitalization, Other)
  Sender: SANOFI AVENTIS
  Company Number: EG-SA-2025SA167541

PATIENT
  Age: 6 Year
  Sex: Male
  Weight: 21 kg

DRUGS (1)
  1. CEREZYME [Suspect]
     Active Substance: IMIGLUCERASE
     Indication: Gaucher^s disease type I
     Dosage: 2 DF, QOW
     Route: 042
     Dates: end: 20250520

REACTIONS (9)
  - Pneumonia [Fatal]
  - Oxygen saturation decreased [Fatal]
  - Chest discomfort [Fatal]
  - Pyrexia [Fatal]
  - Cough [Fatal]
  - Dyspnoea [Fatal]
  - Acute respiratory distress syndrome [Fatal]
  - Respiratory failure [Fatal]
  - Asthma [Recovered/Resolved]

NARRATIVE: CASE EVENT DATE: 20250501
